FAERS Safety Report 15940998 (Version 6)
Quarter: 2019Q2

REPORT INFORMATION
  Report Type: Spontaneous
  Country: US (occurrence: US)
  Receive Date: 20190208
  Receipt Date: 20190611
  Transmission Date: 20190711
  Serious: Yes (Hospitalization)
  Sender: FDA-Public Use
  Company Number: US-BIOGEN-2019BI00692101

PATIENT
  Age: 72 Year
  Sex: Male

DRUGS (1)
  1. TYSABRI [Suspect]
     Active Substance: NATALIZUMAB
     Indication: MULTIPLE SCLEROSIS
     Route: 050
     Dates: start: 20181210, end: 20190329

REACTIONS (11)
  - Multiple sclerosis relapse [Unknown]
  - Faecaloma [Unknown]
  - Malignant melanoma [Unknown]
  - Infection [Unknown]
  - Mobility decreased [Unknown]
  - Asthenia [Unknown]
  - Pneumonia [Unknown]
  - Adhesion [Unknown]
  - Decubitus ulcer [Unknown]
  - Crohn^s disease [Unknown]
  - Irritability [Unknown]

NARRATIVE: CASE EVENT DATE: 20181230
